FAERS Safety Report 9250940 (Version 1)
Quarter: 2013Q1

REPORT INFORMATION
  Report Type: Spontaneous
  Country: US (occurrence: None)
  Receive Date: 20130305
  Receipt Date: 20130305
  Transmission Date: 20140127
  Serious: Yes (Hospitalization)
  Sender: FDA-Public Use
  Company Number: 163-21880-12100615

PATIENT
  Age: 56 Year
  Sex: Male

DRUGS (11)
  1. REVLIMID [Suspect]
     Indication: PLASMA CELL MYELOMA
     Dosage: 10 MG, 14 IN 28 D, PO
     Route: 048
     Dates: start: 20120914, end: 20120927
  2. ACYCLOVIR (ACICLOVIR) [Concomitant]
  3. ASA (ACETYLSALICYLIC ACID) [Concomitant]
  4. DEXAMETHASONE (DEXAMETHASONE) [Concomitant]
  5. NORVASC (AMLODIPINE BESILATE) [Concomitant]
  6. RANITIDINE (RANITIDINE) [Concomitant]
  7. VELCADE [Concomitant]
  8. PEPCID (FAMOTIDINE) [Concomitant]
  9. K-DUR (POTASSIUM CHLORIDE) [Concomitant]
  10. MAGNESIUM (MAGNESIUM) [Concomitant]
  11. SODIUM CHLORIDE (SODIUM CHLORIDE) [Concomitant]

REACTIONS (1)
  - Pneumonia [None]
